FAERS Safety Report 25789439 (Version 1)
Quarter: 2025Q3

REPORT INFORMATION
  Report Type: Spontaneous
  Country: US (occurrence: US)
  Receive Date: 20250911
  Receipt Date: 20250911
  Transmission Date: 20251021
  Serious: Yes (Other)
  Sender: COOPERSURGICAL
  Company Number: US-COOPERSURGICAL, INC.-2025CPS006498

PATIENT
  Age: 38 Year
  Sex: Female
  Weight: 86.168 kg

DRUGS (5)
  1. PARAGARD T 380A [Suspect]
     Active Substance: COPPER
     Indication: Contraception
     Route: 015
     Dates: start: 20140521
  2. NEXPLANON [Suspect]
     Active Substance: ETONOGESTREL
     Dates: end: 20240906
  3. WELLBUTRIN [Concomitant]
     Active Substance: BUPROPION HYDROCHLORIDE
     Route: 048
     Dates: start: 20200416
  4. XANAX [Concomitant]
     Active Substance: ALPRAZOLAM
     Route: 048
     Dates: start: 20200416, end: 20250116
  5. ADDERALL [Concomitant]
     Active Substance: AMPHETAMINE ASPARTATE\AMPHETAMINE SULFATE\DEXTROAMPHETAMINE SACCHARATE\DEXTROAMPHETAMINE SULFATE
     Route: 048
     Dates: start: 20160316

REACTIONS (22)
  - Uterine leiomyoma [Recovered/Resolved]
  - Hysterectomy [Recovered/Resolved]
  - Salpingectomy [Recovered/Resolved]
  - Iron deficiency anaemia [Unknown]
  - Reproductive complication associated with device [Not Recovered/Not Resolved]
  - Infertility [Not Recovered/Not Resolved]
  - Device breakage [Recovered/Resolved]
  - Foreign body in reproductive tract [Recovered/Resolved]
  - Complication of device removal [Recovered/Resolved]
  - Embedded device [Recovered/Resolved]
  - Abnormal uterine bleeding [Recovered/Resolved]
  - Procedural pain [Recovered/Resolved]
  - Anxiety [Not Recovered/Not Resolved]
  - Sexual dysfunction [Not Recovered/Not Resolved]
  - Emotional distress [Not Recovered/Not Resolved]
  - Post-traumatic stress disorder [Unknown]
  - Endometrial disorder [Unknown]
  - Insomnia [Unknown]
  - Fear [Unknown]
  - Menstruation irregular [Recovered/Resolved]
  - Heavy menstrual bleeding [Unknown]
  - Pelvic pain [Unknown]

NARRATIVE: CASE EVENT DATE: 20230406
